FAERS Safety Report 24741324 (Version 1)
Quarter: 2024Q4

REPORT INFORMATION
  Report Type: Other
  Country: FR (occurrence: FR)
  Receive Date: 20241217
  Receipt Date: 20241217
  Transmission Date: 20250115
  Serious: Yes (Hospitalization)
  Sender: ZYDUS PHARM
  Company Number: None

PATIENT

DRUGS (1)
  1. LEVOFLOXACIN [Suspect]
     Active Substance: LEVOFLOXACIN
     Indication: Wound
     Dosage: 1000 MILLIGRAM, QD
     Route: 048
     Dates: start: 20241015, end: 20241103

REACTIONS (1)
  - Aortic dissection [Recovering/Resolving]

NARRATIVE: CASE EVENT DATE: 20241103
